FAERS Safety Report 5060907-1 (Version None)
Quarter: 2006Q2

REPORT INFORMATION
  Report Type: 
  Country: None (occurrence: None)
  Receive Date: 20060630
  Receipt Date: 20051030
  Transmission Date: 20061013
  Serious: Yes (Other)
  Sender: FDA-Public Use
  Company Number: 2005148315

PATIENT
  Sex: Male
  Weight: 102.0593 kg

DRUGS (2)
  1. NICOTROL [Suspect]
     Indication: SMOKING CESSATION THERAPY
     Dosage: 6-8 CARTRIDGES DAILY, INHALATION
     Route: 055
     Dates: start: 20040701
  2. ASPIRIN [Concomitant]

REACTIONS (2)
  - DEPENDENCE [None]
  - MEDICATION ERROR [None]
